FAERS Safety Report 24007113 (Version 1)
Quarter: 2024Q2

REPORT INFORMATION
  Report Type: Spontaneous
  Country: CA (occurrence: CA)
  Receive Date: 20240624
  Receipt Date: 20240624
  Transmission Date: 20240716
  Serious: Yes (Other)
  Sender: FDA-Public Use
  Company Number: None

PATIENT
  Age: 52 Year
  Sex: Male

DRUGS (28)
  1. ETHIODIZED OIL [Suspect]
     Active Substance: ETHIODIZED OIL
     Indication: Product used for unknown indication
  2. ALUNBRIG [Suspect]
     Active Substance: BRIGATINIB
     Indication: Disease progression
  3. ALUNBRIG [Suspect]
     Active Substance: BRIGATINIB
     Indication: Targeted cancer therapy
  4. AMILOMER [Suspect]
     Active Substance: AMILOMER
     Indication: Pancreatic carcinoma metastatic
  5. CISPLATIN [Suspect]
     Active Substance: CISPLATIN
     Indication: Pancreatic carcinoma metastatic
  6. ENTRECTINIB [Suspect]
     Active Substance: ENTRECTINIB
     Indication: Product used for unknown indication
  7. MITOMYCIN [Suspect]
     Active Substance: MITOMYCIN
     Indication: Pancreatic carcinoma metastatic
  8. BEVACIZUMAB [Suspect]
     Active Substance: BEVACIZUMAB
     Indication: Pancreatic carcinoma metastatic
  9. DEMCIZUMAB [Suspect]
     Active Substance: DEMCIZUMAB
     Indication: Pancreatic carcinoma metastatic
  10. DEMCIZUMAB [Suspect]
     Active Substance: DEMCIZUMAB
     Indication: Metastases to liver
  11. DOCETAXEL [Suspect]
     Active Substance: DOCETAXEL\DOCETAXEL ANHYDROUS
     Indication: Pancreatic carcinoma metastatic
  12. GEMCITABINE [Suspect]
     Active Substance: GEMCITABINE
     Indication: Pancreatic carcinoma metastatic
  13. GEMCITABINE [Suspect]
     Active Substance: GEMCITABINE
     Indication: Metastases to liver
  14. OSIMERTINIB [Suspect]
     Active Substance: OSIMERTINIB
     Indication: Pancreatic carcinoma metastatic
  15. OXALIPLATIN [Suspect]
     Active Substance: OXALIPLATIN
     Indication: Pancreatic carcinoma metastatic
  16. PERTUZUMAB [Suspect]
     Active Substance: PERTUZUMAB
     Indication: Pancreatic carcinoma metastatic
  17. TRASTUZUMAB DERUXTECAN [Suspect]
     Active Substance: TRASTUZUMAB DERUXTECAN
     Indication: Pancreatic carcinoma metastatic
  18. PEMETREXED [Suspect]
     Active Substance: PEMETREXED
     Indication: Pancreatic carcinoma metastatic
  19. PACLITAXEL [Suspect]
     Active Substance: PACLITAXEL
     Indication: Pancreatic carcinoma metastatic
     Route: 042
  20. PACLITAXEL [Suspect]
     Active Substance: PACLITAXEL
     Indication: Metastases to liver
  21. CAPECITABINE [Suspect]
     Active Substance: CAPECITABINE
     Indication: Brain cancer metastatic
  22. PEMBROLIZUMAB [Suspect]
     Active Substance: PEMBROLIZUMAB
     Indication: Brain cancer metastatic
  23. LORBRENA [Suspect]
     Active Substance: LORLATINIB
     Indication: Pulmonary mass
  24. LORBRENA [Suspect]
     Active Substance: LORLATINIB
     Indication: Neoplasm
  25. CAPECITABINE [Suspect]
     Active Substance: CAPECITABINE
     Indication: Pancreatic carcinoma metastatic
  26. TRASTUZUMAB DERUXTECAN [Suspect]
     Active Substance: TRASTUZUMAB DERUXTECAN
     Indication: Pancreatic carcinoma metastatic
  27. FLUOROURACIL [Suspect]
     Active Substance: FLUOROURACIL
     Indication: Pancreatic carcinoma metastatic
  28. YTTRIUM CHLORIDE Y-90 [Suspect]
     Active Substance: YTTRIUM CHLORIDE Y-90
     Indication: Radiotherapy

REACTIONS (3)
  - Drug ineffective [Unknown]
  - Disease progression [Unknown]
  - Pancreatic carcinoma metastatic [Unknown]
